FAERS Safety Report 24050884 (Version 1)
Quarter: 2024Q3

REPORT INFORMATION
  Report Type: Spontaneous
  Country: BR (occurrence: BR)
  Receive Date: 20240704
  Receipt Date: 20240704
  Transmission Date: 20241016
  Serious: Yes (Other)
  Sender: Phathom Pharmaceuticals
  Company Number: BR-PHATHOM PHARMACEUTICALS INC.-2024PHT00518

PATIENT
  Sex: Male
  Weight: 73 kg

DRUGS (12)
  1. VONOPRAZAN FUMARATE [Suspect]
     Active Substance: VONOPRAZAN FUMARATE
     Indication: Systemic scleroderma
     Dosage: 20 MG, 1X/DAY
     Route: 048
     Dates: start: 202311
  2. VONOPRAZAN FUMARATE [Suspect]
     Active Substance: VONOPRAZAN FUMARATE
     Indication: Gastrooesophageal reflux disease
  3. VONOPRAZAN FUMARATE [Suspect]
     Active Substance: VONOPRAZAN FUMARATE
     Indication: Abdominal pain
  4. MYCOPHENOLATE MOFETIL [Concomitant]
     Active Substance: MYCOPHENOLATE MOFETIL
  5. MOTILIUM [Concomitant]
     Active Substance: DOMPERIDONE
  6. SYNTHROID [Concomitant]
     Active Substance: LEVOTHYROXINE SODIUM
  7. CLOPIDOGREL [Concomitant]
     Active Substance: CLOPIDOGREL BISULFATE
  8. LIVALO [Concomitant]
     Active Substance: PITAVASTATIN CALCIUM
  9. NIFEDIPINE [Concomitant]
     Active Substance: NIFEDIPINE
  10. JARDIANCE [Concomitant]
     Active Substance: EMPAGLIFLOZIN
  11. ELIQUIS [Concomitant]
     Active Substance: APIXABAN
  12. LOPERAMIDE [Concomitant]
     Active Substance: LOPERAMIDE

REACTIONS (8)
  - Pulmonary hypertension [Unknown]
  - Product prescribing error [Unknown]
  - Off label use [Unknown]
  - Oesophageal disorder [Unknown]
  - Weight decreased [Unknown]
  - Angiopathy [Unknown]
  - Body height decreased [Unknown]
  - Bradycardia [Unknown]
